FAERS Safety Report 4593914-3 (Version None)
Quarter: 2005Q1

REPORT INFORMATION
  Report Type: 
  Country: None (occurrence: None)
  Receive Date: 20050222
  Receipt Date: 20050210
  Transmission Date: 20050727
  Serious: Yes (Hospitalization)
  Sender: FDA-Public Use
  Company Number: 200509264

PATIENT
  Sex: Male

DRUGS (1)
  1. HUMATE-P [Suspect]
     Dates: start: 20050101

REACTIONS (8)
  - ABDOMINAL PAIN [None]
  - CHILLS [None]
  - HYPOTENSION [None]
  - INFUSION RELATED REACTION [None]
  - PYREXIA [None]
  - SOMNOLENCE [None]
  - URTICARIA [None]
  - VOMITING [None]
